FAERS Safety Report 5751538-6 (Version None)
Quarter: 2008Q2

REPORT INFORMATION
  Report Type: 
  Country: None (occurrence: None)
  Receive Date: 20080528
  Receipt Date: 20080516
  Transmission Date: 20081010
  Serious: Yes (Hospitalization)
  Sender: FDA-Public Use
  Company Number: PHHY2008DK05619

PATIENT
  Sex: Female
  Weight: 62 kg

DRUGS (9)
  1. EXELON [Suspect]
     Dosage: 4.6 MG/24 HOURS
     Route: 062
     Dates: start: 20080201
  2. EXELON [Suspect]
     Dosage: 9.5 MG/24 HOURS
     Dates: start: 20080309, end: 20080316
  3. KALEORID [Concomitant]
  4. MAGNYL [Concomitant]
  5. BETOLVEX [Concomitant]
  6. FUROSEMIDE [Concomitant]
  7. PERINDOPRIL ERBUMINE [Concomitant]
  8. FOSAMAX [Concomitant]
  9. ALOPAM [Concomitant]

REACTIONS (9)
  - ABDOMINAL PAIN UPPER [None]
  - ASPARTATE AMINOTRANSFERASE INCREASED [None]
  - BLOOD ALKALINE PHOSPHATASE INCREASED [None]
  - BLOOD CREATININE INCREASED [None]
  - BLOOD UREA INCREASED [None]
  - GALLBLADDER DISORDER [None]
  - HEPATOTOXICITY [None]
  - LIVER DISORDER [None]
  - MEMORY IMPAIRMENT [None]
